FAERS Safety Report 21397293 (Version 1)
Quarter: 2022Q3

REPORT INFORMATION
  Report Type: Report from Study
  Country: US (occurrence: US)
  Receive Date: 20220930
  Receipt Date: 20220930
  Transmission Date: 20221027
  Serious: No
  Sender: FDA-Public Use
  Company Number: US-ABBVIE-4129064

PATIENT
  Sex: Female

DRUGS (4)
  1. IMBRUVICA [Suspect]
     Active Substance: IBRUTINIB
     Indication: Marginal zone lymphoma
     Route: 048
     Dates: start: 20211016
  2. Pfizer/BioNTech Covid Vaccine [Concomitant]
     Indication: COVID-19 immunisation
     Dosage: 1IN1 1ST DOSE
     Route: 030
  3. Pfizer/BioNTech Covid Vaccine [Concomitant]
     Indication: COVID-19 immunisation
     Dosage: 1IN1 2ND DOSE
     Route: 030
  4. Pfizer/BioNTech Covid Vaccine [Concomitant]
     Indication: COVID-19 immunisation
     Dosage: 1IN1 BOOSTER DOSE
     Route: 030

REACTIONS (1)
  - Hepatic mass [Unknown]
